FAERS Safety Report 21049542 (Version 1)
Quarter: 2022Q3

REPORT INFORMATION
  Report Type: Spontaneous
  Country: US (occurrence: None)
  Receive Date: 20220706
  Receipt Date: 20220706
  Transmission Date: 20221027
  Serious: Yes (Other)
  Sender: FDA-Public Use
  Company Number: None

PATIENT
  Age: 59 Year
  Sex: Female
  Weight: 95.85 kg

DRUGS (15)
  1. SUBOXONE [Suspect]
     Active Substance: BUPRENORPHINE HYDROCHLORIDE\NALOXONE HYDROCHLORIDE
     Indication: Pain
     Route: 060
     Dates: start: 20090101
  2. SUBOXONE [Suspect]
     Active Substance: BUPRENORPHINE HYDROCHLORIDE\NALOXONE HYDROCHLORIDE
     Indication: Drug withdrawal syndrome
  3. ATIVAN [Concomitant]
     Active Substance: LORAZEPAM
  4. LAMOTRIGINE [Concomitant]
     Active Substance: LAMOTRIGINE
  5. levotyroxine [Concomitant]
  6. CLONIDINE [Concomitant]
     Active Substance: CLONIDINE
  7. CELEXA [Concomitant]
     Active Substance: CITALOPRAM HYDROBROMIDE
  8. REMERON [Concomitant]
     Active Substance: MIRTAZAPINE
  9. SUBOXONE [Concomitant]
     Active Substance: BUPRENORPHINE HYDROCHLORIDE\NALOXONE HYDROCHLORIDE
  10. VITAMIN D NOS [Concomitant]
     Active Substance: VITAMIN D NOS
  11. restore for eyes [Concomitant]
  12. thera tear [Concomitant]
  13. VITAMINS [Concomitant]
     Active Substance: VITAMINS
  14. TYLENOL [Concomitant]
     Active Substance: ACETAMINOPHEN
  15. MOTRIN [Concomitant]
     Active Substance: IBUPROFEN

REACTIONS (3)
  - Tooth fracture [None]
  - Tooth loss [None]
  - Dental caries [None]

NARRATIVE: CASE EVENT DATE: 20160101
